FAERS Safety Report 6863351-7 (Version None)
Quarter: 2010Q3

REPORT INFORMATION
  Report Type: 
  Country: None (occurrence: None)
  Receive Date: 20100721
  Receipt Date: 20100714
  Transmission Date: 20110219
  Serious: Yes (Hospitalization)
  Sender: FDA-Public Use
  Company Number: DE-SANOFI-AVENTIS-2010SA041653

PATIENT
  Age: 81 Year
  Sex: Female
  Weight: 85 kg

DRUGS (16)
  1. PLAVIX [Suspect]
     Indication: ACUTE CORONARY SYNDROME
     Route: 048
     Dates: start: 20090123
  2. ASPIRIN [Concomitant]
     Dates: start: 20090120
  3. INSULIN [Concomitant]
     Dates: start: 20080621
  4. INSULIN HUMAN [Concomitant]
     Dates: start: 20080621
  5. DIALOG [Concomitant]
     Dates: start: 20080621
  6. LISINOPRIL [Concomitant]
     Dates: start: 20080621
  7. PENTAERYTHRITOL TETRANITRATE [Concomitant]
     Dates: start: 20080621
  8. TORREM [Concomitant]
     Dates: start: 20080621
  9. CALCIMAGON-D3 [Concomitant]
     Dates: start: 20050101
  10. PANTOZOL [Concomitant]
     Dates: start: 20080621
  11. ALENDRONATE SODIUM [Concomitant]
     Dates: start: 20100120
  12. SOFRA [Concomitant]
     Dates: start: 20100120
  13. DOMPERIDONE [Concomitant]
     Dates: start: 20100225
  14. BELOC-ZOC COMP [Concomitant]
     Dates: start: 20100225
  15. DELIX PLUS [Concomitant]
     Dates: start: 20100303
  16. ALUMINIUM HYDROXIDE/MAGNESIUM HYDROXIDE [Concomitant]
     Dates: start: 20100303

REACTIONS (1)
  - ANGINA PECTORIS [None]
